FAERS Safety Report 23831329 (Version 3)
Quarter: 2024Q3

REPORT INFORMATION
  Report Type: Spontaneous
  Country: US (occurrence: US)
  Receive Date: 20240508
  Receipt Date: 20240919
  Transmission Date: 20241017
  Serious: No
  Sender: PFIZER
  Company Number: US-PFIZER INC-202300435542

PATIENT
  Age: 71 Year
  Sex: Female

DRUGS (10)
  1. XELJANZ [Suspect]
     Active Substance: TOFACITINIB CITRATE
     Dosage: 5 MG, 1X/DAY (TAKE 1 TABLET ONCE DAILY WITH OR WITHOUT FOOD)
     Route: 048
  2. XELJANZ [Suspect]
     Active Substance: TOFACITINIB CITRATE
     Dosage: 5 MG, 2X/DAY
  3. XELJANZ [Suspect]
     Active Substance: TOFACITINIB CITRATE
     Dosage: 5 MG
  4. ROSUVASTATIN [Concomitant]
     Active Substance: ROSUVASTATIN\ROSUVASTATIN CALCIUM
     Dosage: UNK
  5. GEMTESA [Concomitant]
     Active Substance: VIBEGRON
     Dosage: UNK
  6. DULOXETINE [Concomitant]
     Active Substance: DULOXETINE
     Dosage: UNK
  7. HYDROCHLOROTHIAZIDE [Concomitant]
     Active Substance: HYDROCHLOROTHIAZIDE
     Dosage: UNK
  8. AMLODIPINE [Concomitant]
     Active Substance: AMLODIPINE BESYLATE
     Dosage: UNK
  9. NITROFURANTOIN [Concomitant]
     Active Substance: NITROFURANTOIN
     Dosage: UNK
  10. ESTRADIOL [Concomitant]
     Active Substance: ESTRADIOL
     Dosage: UNK

REACTIONS (3)
  - Drug ineffective [Unknown]
  - Condition aggravated [Recovering/Resolving]
  - Off label use [Unknown]
